FAERS Safety Report 17447056 (Version 1)
Quarter: 2020Q1

REPORT INFORMATION
  Report Type: Spontaneous
  Country: GR (occurrence: GR)
  Receive Date: 20200221
  Receipt Date: 20200221
  Transmission Date: 20200409
  Serious: Yes (Other)
  Sender: FDA-Public Use
  Company Number: NVSC2020GR047374

PATIENT
  Age: 92 Year
  Sex: Female

DRUGS (3)
  1. QUETIAPINE. [Suspect]
     Active Substance: QUETIAPINE
     Indication: NERVOUS SYSTEM DISORDER
     Dosage: 400 MG QD
     Route: 065
  2. FLECAINIDE [Interacting]
     Active Substance: FLECAINIDE
     Indication: CARDIAC DISORDER
     Dosage: 200 MILLIGRAM DAILY; 200MG/ DAILY, EVERY 12 HOURS IN TWO DOSES, OF 100MG EACH ONE
     Route: 065
  3. MEMANTINE. [Suspect]
     Active Substance: MEMANTINE
     Indication: NERVOUS SYSTEM DISORDER
     Dosage: 10 MG QD
     Route: 065

REACTIONS (6)
  - Device malfunction [Recovered/Resolved]
  - Drug interaction [Unknown]
  - Electrocardiogram QRS complex prolonged [Recovered/Resolved]
  - Acute kidney injury [Recovering/Resolving]
  - Stupor [Recovered/Resolved]
  - Electrocardiogram QT prolonged [Recovered/Resolved]
